FAERS Safety Report 18106255 (Version 2)
Quarter: 2021Q2

REPORT INFORMATION
  Report Type: Spontaneous
  Country: US (occurrence: US)
  Receive Date: 20200803
  Receipt Date: 20210629
  Transmission Date: 20210717
  Serious: Yes (Death, Hospitalization)
  Sender: FDA-Public Use
  Company Number: US-TEVA-2020-US-1810013

PATIENT
  Age: 11 Year
  Sex: Male

DRUGS (2)
  1. ISOTRETINOIN. [Suspect]
     Active Substance: ISOTRETINOIN
     Indication: NEUROBLASTOMA
     Dosage: 160 MG/M2 DAILY; IN TWO DOSES FOR 14 DAYS ADMINISTERED EVERY 28 DAYS FOR SIX CYCLES
     Route: 065
     Dates: end: 200901
  2. DINUTUXIMAB [Suspect]
     Active Substance: DINUTUXIMAB
     Indication: NEUROBLASTOMA
     Route: 065

REACTIONS (4)
  - Epiphyses premature fusion [Not Recovered/Not Resolved]
  - Mydriasis [Unknown]
  - Ocular toxicity [Unknown]
  - Knee deformity [Not Recovered/Not Resolved]
